FAERS Safety Report 22388653 (Version 1)
Quarter: 2023Q2

REPORT INFORMATION
  Report Type: Spontaneous
  Country: US (occurrence: US)
  Receive Date: 20230531
  Receipt Date: 20230531
  Transmission Date: 20230721
  Serious: No
  Sender: FDA-Public Use
  Company Number: US-SEBELA IRELAND LIMITED-2023SEB00004

PATIENT
  Age: 76 Year
  Sex: Male
  Weight: 84.807 kg

DRUGS (2)
  1. ALOSETRON HYDROCHLORIDE [Suspect]
     Active Substance: ALOSETRON HYDROCHLORIDE
     Indication: Irritable bowel syndrome
     Dosage: 0.5 MG, 2X/DAY IN THE MORNING AND EVENING
     Dates: start: 20230123
  2. UNSPECIFIED CANCER DRUG [Concomitant]

REACTIONS (4)
  - Therapeutic product effect incomplete [Not Recovered/Not Resolved]
  - Abdominal pain upper [Not Recovered/Not Resolved]
  - Flatulence [Not Recovered/Not Resolved]
  - Off label use [Not Recovered/Not Resolved]

NARRATIVE: CASE EVENT DATE: 20230101
